FAERS Safety Report 8566317 (Version 5)
Quarter: 2013Q1

REPORT INFORMATION
  Report Type: Spontaneous
  Country: US (occurrence: US)
  Receive Date: 20120517
  Receipt Date: 20130213
  Transmission Date: 20140127
  Serious: Yes (Hospitalization)
  Sender: FDA-Public Use
  Company Number: US-BAYER-2012-047724

PATIENT
  Age: 50 Year
  Sex: Female
  Weight: 72.56 kg

DRUGS (7)
  1. YAZ [Suspect]
     Dosage: UNK
     Dates: start: 201102, end: 201107
  2. BEYAZ [Suspect]
  3. YASMIN [Suspect]
  4. HYDROCHLOROTHIAZIDE [Concomitant]
     Dosage: UNK
     Dates: start: 200809, end: 201109
  5. IBUPROFEN [Concomitant]
     Dosage: UNK
     Dates: start: 200503, end: 201109
  6. SKELAXIN [Concomitant]
     Dosage: UNK, PRN
     Dates: start: 200503
  7. HYDROCODONE W/ACETAMINOPHEN [Concomitant]
     Dosage: UNK
     Dates: start: 20110919

REACTIONS (12)
  - Myocardial ischaemia [None]
  - Deep vein thrombosis [None]
  - Pelvic venous thrombosis [None]
  - Deep vein thrombosis [None]
  - Pulmonary embolism [None]
  - Pulmonary fibrosis [None]
  - Hysterectomy [None]
  - Injury [None]
  - Pain [None]
  - Psychological trauma [None]
  - Anxiety [None]
  - Emotional distress [None]
